FAERS Safety Report 20923524 (Version 4)
Quarter: 2022Q3

REPORT INFORMATION
  Report Type: Other
  Country: US (occurrence: None)
  Receive Date: 20220607
  Receipt Date: 20220819
  Transmission Date: 20221027
  Serious: Yes (Death, Other)
  Sender: FDA-Public Use
  Company Number: US-ROCHE-3112209

PATIENT
  Age: 71 Year
  Sex: Male

DRUGS (1)
  1. CELLCEPT [Suspect]
     Active Substance: MYCOPHENOLATE MOFETIL
     Indication: Idiopathic interstitial pneumonia
     Dosage: 3 IN AM AND 2 PM
     Route: 065

REACTIONS (7)
  - Death [Fatal]
  - Cardiomegaly [Unknown]
  - Liver disorder [Unknown]
  - Renal disorder [Unknown]
  - Weight decreased [Unknown]
  - Intra-abdominal fluid collection [Unknown]
  - Off label use [Unknown]

NARRATIVE: CASE EVENT DATE: 20220523
